FAERS Safety Report 6551668-5 (Version None)
Quarter: 2010Q1

REPORT INFORMATION
  Report Type: 
  Country: None (occurrence: None)
  Receive Date: 20100126
  Receipt Date: 20100115
  Transmission Date: 20100710
  Serious: Yes (Hospitalization)
  Sender: FDA-Public Use
  Company Number: NL-JNJFOC-20100103352

PATIENT
  Sex: Female

DRUGS (5)
  1. REMICADE [Suspect]
     Indication: COLITIS ULCERATIVE
     Route: 042
     Dates: start: 20081016, end: 20100104
  2. REMICADE [Suspect]
     Route: 042
     Dates: start: 20081016, end: 20100104
  3. PREDNISOLONE [Concomitant]
  4. SALOFALK [Concomitant]
  5. FOSAMAX [Concomitant]

REACTIONS (1)
  - DELIRIUM [None]
